FAERS Safety Report 21166433 (Version 1)
Quarter: 2022Q3

REPORT INFORMATION
  Report Type: Spontaneous
  Country: US (occurrence: None)
  Receive Date: 20220802
  Receipt Date: 20220802
  Transmission Date: 20221026
  Serious: No
  Sender: FDA-Public Use
  Company Number: None

PATIENT
  Age: 69 Year
  Sex: Male

DRUGS (1)
  1. BEBTELOVIMAB [Suspect]
     Active Substance: BEBTELOVIMAB
     Dates: start: 20220729, end: 20220729

REACTIONS (5)
  - Infusion related reaction [None]
  - Dizziness [None]
  - Nausea [None]
  - Feeling abnormal [None]
  - Rebound effect [None]

NARRATIVE: CASE EVENT DATE: 20220729
